FAERS Safety Report 4697730-3 (Version None)
Quarter: 2005Q2

REPORT INFORMATION
  Report Type: 
  Country: None (occurrence: None)
  Receive Date: 20050621
  Receipt Date: 20050621
  Transmission Date: 20051028
  Serious: No
  Sender: FDA-Public Use
  Company Number: None

PATIENT
  Age: 56 Year
  Sex: Male
  Weight: 109.1 kg

DRUGS (4)
  1. DIVALPROEX TAB, EC (DELAYED REL [Suspect]
     Indication: SCHIZOPHRENIA
     Dosage: 1000MG, QHS, PO
     Route: 048
     Dates: start: 20050426, end: 20050427
  2. DIVALPROEX TAB, EC (DELAYED REL [Suspect]
     Indication: SCHIZOPHRENIA
     Dosage: 500MG, QAM, PO
     Route: 048
     Dates: start: 20050426, end: 20050427
  3. LORAZEPAM [Concomitant]
  4. QUETIAPINE FUMARATE [Concomitant]

REACTIONS (4)
  - CONDITION AGGRAVATED [None]
  - COORDINATION ABNORMAL [None]
  - SLEEP APNOEA SYNDROME [None]
  - SOMNOLENCE [None]
